FAERS Safety Report 23795663 (Version 1)
Quarter: 2024Q2

REPORT INFORMATION
  Report Type: Spontaneous
  Country: US (occurrence: None)
  Receive Date: 20240426
  Receipt Date: 20240426
  Transmission Date: 20240716
  Serious: Yes (Other)
  Sender: FDA-Public Use
  Company Number: None

PATIENT
  Age: 33 Year
  Sex: Female
  Weight: 118.35 kg

DRUGS (1)
  1. MOUNJARO [Suspect]
     Active Substance: TIRZEPATIDE
     Indication: Type 2 diabetes mellitus
     Dosage: 2.5 MG WEEILY SUBCUTANEOUS
     Route: 058
     Dates: start: 20240422, end: 20240426

REACTIONS (8)
  - Psychotic disorder [None]
  - Agitation [None]
  - Irritability [None]
  - Abnormal behaviour [None]
  - Suicidal ideation [None]
  - Nausea [None]
  - Vomiting projectile [None]
  - Migraine [None]
